FAERS Safety Report 7892346-X (Version None)
Quarter: 2011Q4

REPORT INFORMATION
  Report Type: 
  Country: None (occurrence: None)
  Receive Date: 20111103
  Receipt Date: 20111103
  Transmission Date: 20120403
  Serious: Yes (Hospitalization)
  Sender: FDA-Public Use
  Company Number: None

PATIENT
  Sex: Female

DRUGS (2)
  1. XELODA [Suspect]
     Dosage: 600MG 3BID ORAL
     Route: 048
     Dates: start: 20110923, end: 20111024
  2. XELODA [Suspect]
     Dosage: 150MG BID ORAL
     Route: 048
     Dates: start: 20110923, end: 20111024

REACTIONS (3)
  - DIARRHOEA [None]
  - NAUSEA [None]
  - VOMITING [None]
